FAERS Safety Report 5284454-7 (Version None)
Quarter: 2007Q1

REPORT INFORMATION
  Report Type: 
  Country: None (occurrence: None)
  Receive Date: 20061227
  Receipt Date: 20061012
  Transmission Date: 20070707
  Serious: Yes (Other)
  Sender: FDA-Public Use
  Company Number: 13539507

PATIENT
  Age: 40 Year
  Sex: Male

DRUGS (1)
  1. EMSAM [Suspect]
     Indication: DEPRESSION
     Dosage: 12 MILLIGRAM, 1 DAY TD
     Route: 062

REACTIONS (2)
  - BLOOD PRESSURE INCREASED [None]
  - HEADACHE [None]
